FAERS Safety Report 8282588-6 (Version None)
Quarter: 2012Q2

REPORT INFORMATION
  Report Type: 
  Country: None (occurrence: None)
  Receive Date: 20120411
  Receipt Date: 20120330
  Transmission Date: 20120825
  Serious: Yes (Other)
  Sender: FDA-Public Use
  Company Number: A0972504A

PATIENT
  Age: 64 Year
  Sex: Female

DRUGS (1)
  1. ASPIRIN [Suspect]
     Dosage: ORAL
     Route: 048

REACTIONS (1)
  - HAEMATEMESIS [None]
